FAERS Safety Report 6137863-8 (Version None)
Quarter: 2009Q1

REPORT INFORMATION
  Report Type: 
  Country: None (occurrence: None)
  Receive Date: 20090331
  Receipt Date: 20090320
  Transmission Date: 20090719
  Serious: Yes (Other)
  Sender: FDA-Public Use
  Company Number: SE-AMGEN-US340547

PATIENT
  Sex: Female

DRUGS (2)
  1. ENBREL [Suspect]
     Indication: PSORIASIS
     Route: 058
     Dates: start: 20080301, end: 20090308
  2. METHOTREXATE [Concomitant]
     Indication: PSORIASIS
     Route: 065

REACTIONS (3)
  - HYPOAESTHESIA [None]
  - NERVOUS SYSTEM DISORDER [None]
  - OPTIC NEURITIS [None]
